FAERS Safety Report 6105674-5 (Version None)
Quarter: 2009Q1

REPORT INFORMATION
  Report Type: 
  Country: None (occurrence: None)
  Receive Date: 20090306
  Receipt Date: 20090302
  Transmission Date: 20090719
  Serious: Yes (Death, Hospitalization)
  Sender: FDA-Public Use
  Company Number: JP-AMGEN-US336514

PATIENT
  Age: 77 Year
  Sex: Male

DRUGS (15)
  1. ENBREL [Suspect]
     Indication: RHEUMATOID ARTHRITIS
     Route: 058
     Dates: start: 20081125, end: 20090217
  2. AMBROXOL HYDROCHLORIDE [Concomitant]
     Dosage: UNKNOWN
     Route: 048
  3. SPIRONOLACTONE [Concomitant]
     Dosage: UNKNOWN
     Route: 048
  4. RIMATIL [Concomitant]
     Dosage: UNKNOWN
     Route: 048
  5. MUCOSTA [Concomitant]
     Dosage: UNKNOWN
     Route: 048
  6. PREDNISOLONE [Concomitant]
     Dosage: UNKNOWN
     Route: 048
  7. ALFACALCIDOL [Concomitant]
     Dosage: UNKNOWN
     Route: 048
  8. LANSOPRAZOLE [Concomitant]
     Dosage: UNKNOWN
     Route: 048
  9. CELECOXIB [Concomitant]
     Dosage: UNKNOWN
     Route: 048
  10. MAGNESIUM OXIDE [Concomitant]
     Dosage: UNKNOWN
     Route: 048
  11. BENET [Concomitant]
     Dosage: UNKNOWN
     Route: 048
  12. RUEFRIEN [Concomitant]
     Dosage: UNKNOWN
     Route: 048
  13. SUCRALFATE [Concomitant]
     Dosage: UNKNOWN
     Route: 048
  14. ZOLPIDEM TARTRATE [Concomitant]
     Dosage: UNKNOWN
     Route: 048
  15. THEOPHYLLINE [Concomitant]
     Dosage: UNKNOWN
     Route: 048

REACTIONS (7)
  - ABASIA [None]
  - DEATH [None]
  - INTERSTITIAL LUNG DISEASE [None]
  - PAIN [None]
  - PRODUCTIVE COUGH [None]
  - PYREXIA [None]
  - TUBERCULOSIS [None]
